FAERS Safety Report 11011675 (Version 4)
Quarter: 2015Q2

REPORT INFORMATION
  Report Type: Spontaneous
  Country: FR (occurrence: FR)
  Receive Date: 20150410
  Receipt Date: 20150616
  Transmission Date: 20150821
  Serious: Yes (Hospitalization, Disabling)
  Sender: FDA-Public Use
  Company Number: FR-ASTRAZENECA-2015SE32719

PATIENT
  Age: 26970 Day
  Sex: Male

DRUGS (5)
  1. ATACAND [Suspect]
     Active Substance: CANDESARTAN CILEXETIL
     Indication: HYPERTENSION
     Dosage: CANDESARTAN EVOLUGEN (NON AZ PRODUCT), 4 MG DAILY
     Route: 048
     Dates: start: 20131225, end: 201405
  2. KENZEN [Suspect]
     Active Substance: CANDESARTAN
     Indication: HYPERTENSION
     Route: 048
     Dates: start: 2006, end: 200804
  3. ATACAND [Suspect]
     Active Substance: CANDESARTAN CILEXETIL
     Indication: HYPERTENSION
     Dosage: CANDESARTAN EVOLUGEN (NON AZ PRODUCT) 8 MG DAILY
     Route: 048
     Dates: start: 201406, end: 20150326
  4. ATACAND [Suspect]
     Active Substance: CANDESARTAN CILEXETIL
     Indication: HYPERTENSION
     Route: 048
     Dates: start: 200805, end: 20120722
  5. ATACAND [Suspect]
     Active Substance: CANDESARTAN CILEXETIL
     Indication: HYPERTENSION
     Dosage: CANDESARTAN BIOGARAN (NON AZ PRODUCT) 4 MG DAILY
     Route: 048
     Dates: start: 20120723, end: 20131224

REACTIONS (5)
  - Malnutrition [Recovering/Resolving]
  - Rhabdomyolysis [Unknown]
  - Diverticulum intestinal [Unknown]
  - Diarrhoea [Recovering/Resolving]
  - Fall [Unknown]

NARRATIVE: CASE EVENT DATE: 20070601
